FAERS Safety Report 13767431 (Version 1)
Quarter: 2017Q3

REPORT INFORMATION
  Report Type: Spontaneous
  Country: US (occurrence: US)
  Receive Date: 20170719
  Receipt Date: 20170719
  Transmission Date: 20171127
  Serious: Yes (Other)
  Sender: FDA-Public Use
  Company Number: None

PATIENT
  Age: 82 Year
  Sex: Female
  Weight: 43.58 kg

DRUGS (7)
  1. AMLIDOPINE [Concomitant]
  2. PRESSER VITAMINS [Concomitant]
  3. RECLAST [Suspect]
     Active Substance: ZOLEDRONIC ACID
     Indication: OSTEOPOROSIS
     Dosage: ONCE P/YR. INJECTION
     Dates: start: 20090707
  4. PRAVASTATIN. [Concomitant]
     Active Substance: PRAVASTATIN
  5. EYE DROPS [Concomitant]
     Active Substance: UNSPECIFIED INGREDIENT
  6. PROPANOLOL [Concomitant]
     Active Substance: PROPRANOLOL HYDROCHLORIDE
  7. VIACTIVE [Concomitant]

REACTIONS (3)
  - Tooth extraction [None]
  - Pain in jaw [None]
  - Toothache [None]

NARRATIVE: CASE EVENT DATE: 20090707
